FAERS Safety Report 19776929 (Version 1)
Quarter: 2021Q3

REPORT INFORMATION
  Report Type: Spontaneous
  Country: US (occurrence: US)
  Receive Date: 20210902
  Receipt Date: 20210902
  Transmission Date: 20211014
  Serious: No
  Sender: FDA-Public Use
  Company Number: US-009507513-2109USA000083

PATIENT
  Age: 17 Year
  Sex: Female

DRUGS (6)
  1. PRINIVIL [Suspect]
     Active Substance: LISINOPRIL
     Indication: HYPOPLASTIC LEFT HEART SYNDROME
     Dosage: UNK
  2. ASPIRINE [Concomitant]
     Active Substance: ASPIRIN
     Indication: HYPOPLASTIC LEFT HEART SYNDROME
  3. ALDACTONE [Concomitant]
     Active Substance: SPIRONOLACTONE
     Indication: HYPOPLASTIC LEFT HEART SYNDROME
  4. CARVEDILOL. [Concomitant]
     Active Substance: CARVEDILOL
     Indication: HYPOPLASTIC LEFT HEART SYNDROME
  5. LASIX [Concomitant]
     Active Substance: FUROSEMIDE
     Indication: HYPOPLASTIC LEFT HEART SYNDROME
  6. AMLODIPINE [Concomitant]
     Active Substance: AMLODIPINE BESYLATE
     Indication: HYPOPLASTIC LEFT HEART SYNDROME

REACTIONS (1)
  - Product use in unapproved indication [Unknown]
